FAERS Safety Report 14088506 (Version 4)
Quarter: 2019Q2

REPORT INFORMATION
  Report Type: Report from Study
  Country: None (occurrence: US)
  Receive Date: 20171013
  Receipt Date: 20190420
  Transmission Date: 20190711
  Serious: Yes (Hospitalization, Other)
  Sender: FDA-Public Use
  Company Number: US-ABBVIE-17K-163-2125816-00

PATIENT
  Sex: Female

DRUGS (3)
  1. HUMIRA [Suspect]
     Active Substance: ADALIMUMAB
     Route: 058
  2. HUMIRA [Suspect]
     Active Substance: ADALIMUMAB
     Indication: CROHN^S DISEASE
     Route: 058
  3. HUMIRA [Suspect]
     Active Substance: ADALIMUMAB
     Route: 058

REACTIONS (11)
  - Injection site pain [Unknown]
  - Nasopharyngitis [Unknown]
  - Facial paralysis [Recovered/Resolved]
  - Vomiting [Unknown]
  - Mobility decreased [Unknown]
  - Hypertension [Unknown]
  - Facial paralysis [Unknown]
  - Sensory loss [Unknown]
  - Intervertebral disc protrusion [Not Recovered/Not Resolved]
  - Crohn^s disease [Unknown]
  - Blood pressure fluctuation [Unknown]
